FAERS Safety Report 19708795 (Version 1)
Quarter: 2021Q3

REPORT INFORMATION
  Report Type: Report from Study
  Country: US (occurrence: US)
  Receive Date: 20210816
  Receipt Date: 20210816
  Transmission Date: 20211014
  Serious: No
  Sender: FDA-Public Use
  Company Number: NVSC2021US181573

PATIENT
  Age: 74 Year
  Sex: Female

DRUGS (1)
  1. NEORAL [Suspect]
     Active Substance: CYCLOSPORINE
     Indication: PRODUCT USED FOR UNKNOWN INDICATION
     Dosage: 100 MG, QID
     Route: 048
     Dates: start: 20200403

REACTIONS (2)
  - Lip dry [Not Recovered/Not Resolved]
  - Lip pain [Unknown]

NARRATIVE: CASE EVENT DATE: 20210606
